FAERS Safety Report 8847054 (Version 2)
Quarter: 2012Q4

REPORT INFORMATION
  Report Type: 
  Country: US (occurrence: US)
  Receive Date: 20121018
  Receipt Date: 20121106
  Transmission Date: 20130627
  Serious: Yes (Other)
  Sender: FDA-Public Use
  Company Number: US-JNJFOC-20121007787

PATIENT
  Age: 70 Year
  Sex: Female
  Weight: 81.65 kg

DRUGS (2)
  1. PEPCID [Suspect]
     Route: 048
  2. PEPCID [Suspect]
     Indication: DYSPEPSIA
     Dosage: 2 chewable tablets within an hour
     Route: 048
     Dates: start: 20121009, end: 20121009

REACTIONS (4)
  - Dyspnoea [Recovered/Resolved]
  - Pharyngeal oedema [Recovered/Resolved]
  - Swelling face [Recovered/Resolved]
  - Drug hypersensitivity [None]
